FAERS Safety Report 15517534 (Version 1)
Quarter: 2018Q4

REPORT INFORMATION
  Report Type: Spontaneous
  Country: CA (occurrence: CA)
  Receive Date: 20181017
  Receipt Date: 20181017
  Transmission Date: 20190205
  Serious: Yes (Hospitalization)
  Sender: FDA-Public Use
  Company Number: CA-PFIZER INC-2018414794

PATIENT
  Age: 21 Year
  Sex: Female
  Weight: 81 kg

DRUGS (4)
  1. HYDROMORPHONE HYDROCHLORIDE. [Suspect]
     Active Substance: HYDROMORPHONE HYDROCHLORIDE
     Dosage: UNK
     Route: 065
  2. NICOTINE. [Concomitant]
     Active Substance: NICOTINE
     Dosage: UNK
  3. SUBOXONE [Suspect]
     Active Substance: BUPRENORPHINE HYDROCHLORIDE\NALOXONE HYDROCHLORIDE
     Indication: DRUG DEPENDENCE
     Dosage: 2 MG, 1X/DAY
     Route: 048
  4. SUBUTEX [Suspect]
     Active Substance: BUPRENORPHINE HYDROCHLORIDE
     Indication: DRUG DEPENDENCE
     Dosage: 0.5 DF, 1X/DAY
     Route: 048

REACTIONS (5)
  - Drug abuse [Unknown]
  - Product preparation error [Unknown]
  - Nausea [Unknown]
  - Product use issue [Unknown]
  - Hyperemesis gravidarum [Unknown]
